FAERS Safety Report 8095323-1 (Version None)
Quarter: 2012Q1

REPORT INFORMATION
  Report Type: 
  Country: None (occurrence: None)
  Receive Date: 20120129
  Receipt Date: 20111230
  Transmission Date: 20120608
  Serious: No
  Sender: FDA-Public Use
  Company Number: US-ABBOTT-12P-163-0888417-00

PATIENT
  Sex: Female
  Weight: 56.75 kg

DRUGS (5)
  1. UNKNOWN PAIN MEDICATION [Concomitant]
     Indication: ARTHRALGIA
     Dates: start: 20110101
  2. HUMIRA [Suspect]
     Indication: RHEUMATOID ARTHRITIS
     Route: 058
     Dates: start: 20090101, end: 20100101
  3. HUMIRA [Suspect]
     Indication: PSORIATIC ARTHROPATHY
  4. METHOTREXATE [Concomitant]
     Indication: RHEUMATOID ARTHRITIS
  5. UNKNOWN EYE DROPS [Concomitant]
     Indication: DRY EYE

REACTIONS (2)
  - ARTHRALGIA [None]
  - JOINT SWELLING [None]
